FAERS Safety Report 8890282 (Version 1)
Quarter: 2012Q4

REPORT INFORMATION
  Report Type: 
  Country: US (occurrence: US)
  Receive Date: 20121107
  Receipt Date: 20121107
  Transmission Date: 20130627
  Serious: Yes (Hospitalization, Other)
  Sender: FDA-Public Use
  Company Number: US-ELI_LILLY_AND_COMPANY-US201210009078

PATIENT
  Age: 61 Year
  Sex: Female

DRUGS (3)
  1. CYMBALTA [Suspect]
     Indication: PAIN
     Dosage: 60 mg, qd
  2. CYMBALTA [Suspect]
     Dosage: 30 mg, qd
     Dates: start: 20121024
  3. ATIVAN [Concomitant]
     Indication: SLEEP DISORDER
     Dosage: 2 mg, UNK

REACTIONS (10)
  - Spinal fusion surgery [Unknown]
  - Seroma [Unknown]
  - Nerve injury [Unknown]
  - Kyphosis [Unknown]
  - Pain [Unknown]
  - Drug dependence [Unknown]
  - Intentional drug misuse [Unknown]
  - Heart rate increased [Unknown]
  - Anger [Unknown]
  - Palpitations [Unknown]
